FAERS Safety Report 4914408-9 (Version None)
Quarter: 2006Q1

REPORT INFORMATION
  Report Type: 
  Country: None (occurrence: None)
  Receive Date: 20060113
  Receipt Date: 20050919
  Transmission Date: 20060701
  Serious: No
  Sender: FDA-Public Use
  Company Number: 2005SP001872

PATIENT
  Age: 57 Year
  Sex: Female
  Weight: 77.5651 kg

DRUGS (2)
  1. LUNESTA [Suspect]
     Indication: INSOMNIA
     Dosage: 3 MG;HS;ORAL ; 2MG;HS;ORAL
     Route: 048
     Dates: start: 20050101, end: 20050101
  2. LUNESTA [Suspect]
     Indication: INSOMNIA
     Dosage: 3 MG;HS;ORAL ; 2MG;HS;ORAL
     Route: 048
     Dates: start: 20050101

REACTIONS (2)
  - ABNORMAL DREAMS [None]
  - DYSGEUSIA [None]
